FAERS Safety Report 21265550 (Version 1)
Quarter: 2022Q3

REPORT INFORMATION
  Report Type: Spontaneous
  Country: US (occurrence: None)
  Receive Date: 20220827
  Receipt Date: 20220827
  Transmission Date: 20221027
  Serious: Yes (unspecified)
  Sender: FDA-Public Use
  Company Number: None

PATIENT
  Age: 56 Year
  Sex: Female
  Weight: 108 kg

DRUGS (1)
  1. BUPRENORPHINE [Suspect]
     Active Substance: BUPRENORPHINE
     Indication: Arthralgia
     Dosage: OTHER QUANTITY : 1 PATCH(ES);?OTHER FREQUENCY : PER WEEK;?
     Route: 062
     Dates: start: 20210615

REACTIONS (7)
  - Sleep terror [None]
  - Hallucination [None]
  - Myalgia [None]
  - Rash [None]
  - Joint swelling [None]
  - Pruritus [None]
  - Arthropathy [None]

NARRATIVE: CASE EVENT DATE: 20211201
